FAERS Safety Report 23381493 (Version 1)
Quarter: 2024Q1

REPORT INFORMATION
  Report Type: Spontaneous
  Country: PT (occurrence: PT)
  Receive Date: 20240109
  Receipt Date: 20240109
  Transmission Date: 20240409
  Serious: Yes (Other)
  Sender: FDA-Public Use
  Company Number: None

PATIENT
  Age: 34 Year
  Sex: Male
  Weight: 85 kg

DRUGS (3)
  1. IMRALDI [Suspect]
     Active Substance: ADALIMUMAB
     Indication: Juvenile idiopathic arthritis
     Dosage: 15/15 DAYS?40 MG/0.8 ML;
     Route: 058
     Dates: start: 20230615
  2. IMRALDI [Suspect]
     Active Substance: ADALIMUMAB
     Indication: Peripheral spondyloarthritis
  3. Rantudil Retard [Concomitant]
     Indication: Product used for unknown indication
     Route: 048

REACTIONS (5)
  - Haematoma [Not Recovered/Not Resolved]
  - Erythema [Not Recovered/Not Resolved]
  - Rash pruritic [Not Recovered/Not Resolved]
  - Administration site pain [Not Recovered/Not Resolved]
  - Product use in unapproved indication [Unknown]

NARRATIVE: CASE EVENT DATE: 20230901
